FAERS Safety Report 7190311-1 (Version None)
Quarter: 2010Q4

REPORT INFORMATION
  Report Type: 
  Country: None (occurrence: None)
  Receive Date: 20101223
  Receipt Date: 20101210
  Transmission Date: 20110411
  Serious: Yes (Hospitalization, Other)
  Sender: FDA-Public Use
  Company Number: PHHY2010JP84604

PATIENT
  Age: 37 Year
  Sex: Male

DRUGS (4)
  1. TEGRETOL [Suspect]
     Indication: NEUROSIS
     Dosage: UNK
     Route: 048
  2. SERENACE [Concomitant]
     Dosage: 1.5 MG, UNK
     Route: 048
  3. DEPAS [Concomitant]
     Dosage: 1 MG, UNK
     Route: 048
  4. TASMOLIN [Concomitant]
     Dosage: 1 MG, UNK
     Route: 048

REACTIONS (5)
  - CEREBRAL HAEMORRHAGE TRAUMATIC [None]
  - CONTUSION [None]
  - FALL [None]
  - LOSS OF CONSCIOUSNESS [None]
  - TREATMENT NONCOMPLIANCE [None]
